FAERS Safety Report 9712253 (Version 1)
Quarter: 2013Q4

REPORT INFORMATION
  Report Type: Spontaneous
  Country: US (occurrence: US)
  Receive Date: 20131126
  Receipt Date: 20131126
  Transmission Date: 20140711
  Serious: No
  Sender: FDA-Public Use
  Company Number: US-BRISTOL-MYERS SQUIBB COMPANY-19156777

PATIENT
  Age: 70 Year
  Sex: Female

DRUGS (2)
  1. BYDUREON [Suspect]
     Dosage: DURATION: 4-5 MNTHS
     Route: 058
  2. METFORMIN [Concomitant]

REACTIONS (1)
  - Injection site pain [Recovered/Resolved]
